FAERS Safety Report 5789011-1 (Version None)
Quarter: 2008Q2

REPORT INFORMATION
  Report Type: 
  Country: None (occurrence: None)
  Receive Date: 20080626
  Receipt Date: 20080620
  Transmission Date: 20081010
  Serious: Yes (Other)
  Sender: FDA-Public Use
  Company Number: A0715785A

PATIENT
  Age: 50 Year
  Sex: Male

DRUGS (7)
  1. ALTABAX [Suspect]
     Indication: INFECTION
     Route: 061
     Dates: start: 20080205, end: 20080314
  2. DOXYCYCLINE [Suspect]
  3. PREVACID [Concomitant]
  4. DIOVAN HCT [Concomitant]
  5. METOPROLOL [Concomitant]
  6. BENADRYL [Concomitant]
  7. ASPIRIN [Concomitant]

REACTIONS (5)
  - DRUG INEFFECTIVE [None]
  - HYPERSENSITIVITY [None]
  - PYREXIA [None]
  - RASH MACULAR [None]
  - SWELLING FACE [None]
